FAERS Safety Report 6183564-X (Version None)
Quarter: 2009Q2

REPORT INFORMATION
  Report Type: 
  Country: None (occurrence: None)
  Receive Date: 20090508
  Receipt Date: 20090501
  Transmission Date: 20091009
  Serious: Yes (Disabling)
  Sender: FDA-Public Use
  Company Number: JP-BRISTOL-MYERS SQUIBB COMPANY-14615462

PATIENT
  Age: 66 Year
  Sex: Male
  Weight: 61 kg

DRUGS (3)
  1. ERBITUX [Suspect]
     Indication: COLON CANCER
     Dosage: 400 MG/M2 ON 18MAR09 IST INF, 250MG/M2 ON 24MAR09 II INF, 31MAR09- III AND RECENT INF;
     Route: 042
     Dates: start: 20090318, end: 20090318
  2. DIPHENHYDRAMINE HCL [Concomitant]
     Indication: PREMEDICATION
     Dosage: RESTAMIN KOWA CAPSULE
     Route: 048
     Dates: start: 20090318
  3. DECADRON [Concomitant]
     Indication: PREMEDICATION
     Route: 042
     Dates: start: 20090318

REACTIONS (2)
  - LIVER DISORDER [None]
  - SKIN REACTION [None]
